FAERS Safety Report 4691168-0 (Version None)
Quarter: 2005Q2

REPORT INFORMATION
  Report Type: 
  Country: None (occurrence: None)
  Receive Date: 20050610
  Receipt Date: 20050602
  Transmission Date: 20051028
  Serious: Yes (Hospitalization, Other)
  Sender: FDA-Public Use
  Company Number: 163-20785-05060036

PATIENT
  Age: 64 Year
  Sex: Male

DRUGS (14)
  1. THALOMID [Suspect]
     Indication: MULTIPLE MYELOMA
     Dosage: SEE IMAGE
     Route: 048
     Dates: start: 20050510, end: 20050501
  2. THALOMID [Suspect]
     Indication: MULTIPLE MYELOMA
     Dosage: SEE IMAGE
     Route: 048
     Dates: start: 20050501, end: 20050528
  3. DEXAMETHASONE [Suspect]
     Indication: DRUG USE FOR UNKNOWN INDICATION
  4. COUMADIN [Suspect]
     Indication: DRUG USE FOR UNKNOWN INDICATION
  5. SEPTRA DS [Suspect]
     Indication: DRUG USE FOR UNKNOWN INDICATION
  6. LASIX [Concomitant]
  7. OXYCONTIN [Concomitant]
  8. OXYCODONE (OXYCODONE) [Concomitant]
  9. IMDUR (ISOSORIDE MONOITRATE) [Concomitant]
  10. COREG [Concomitant]
  11. MEVACOR (LOVASATIN) [Concomitant]
  12. PROTONIX [Concomitant]
  13. SENOKOT [Concomitant]
  14. K-TABS (POTASSIUM CHLORIDE) [Concomitant]

REACTIONS (11)
  - ABDOMINAL DISTENSION [None]
  - COAGULOPATHY [None]
  - CONFUSIONAL STATE [None]
  - DIZZINESS [None]
  - DRUG INTERACTION [None]
  - DYSPNOEA [None]
  - FAECALOMA [None]
  - INTERNATIONAL NORMALISED RATIO INCREASED [None]
  - MYOCARDIAL INFARCTION [None]
  - NAUSEA [None]
  - OEDEMA PERIPHERAL [None]
